FAERS Safety Report 24876756 (Version 2)
Quarter: 2025Q1

REPORT INFORMATION
  Report Type: Spontaneous
  Country: US (occurrence: US)
  Receive Date: 20250123
  Receipt Date: 20250313
  Transmission Date: 20250408
  Serious: No
  Sender: ROCHE
  Company Number: US-ROCHE-10000183945

PATIENT
  Sex: Female

DRUGS (7)
  1. XOLAIR [Suspect]
     Active Substance: OMALIZUMAB
     Indication: Asthma
     Route: 065
  2. ADVAIR DISKU [Concomitant]
  3. BUMETANIDE [Concomitant]
     Active Substance: BUMETANIDE
  4. LEVOTHYROXINE [Concomitant]
     Active Substance: LEVOTHYROXINE
  5. MOUNJARO [Concomitant]
     Active Substance: TIRZEPATIDE
  6. SOLIFENACIN [Concomitant]
     Active Substance: SOLIFENACIN
  7. SPIRONOLACTO [Concomitant]

REACTIONS (2)
  - Drug ineffective [Unknown]
  - No adverse event [Unknown]
